FAERS Safety Report 6900231-2 (Version None)
Quarter: 2010Q3

REPORT INFORMATION
  Report Type: 
  Country: None (occurrence: None)
  Receive Date: 20100803
  Receipt Date: 20100726
  Transmission Date: 20110219
  Serious: Yes (Hospitalization, Disabling, Other)
  Sender: FDA-Public Use
  Company Number: DE-ROCHE-713396

PATIENT
  Sex: Female
  Weight: 72 kg

DRUGS (3)
  1. BONIVA [Suspect]
     Indication: OSTEOPOROSIS
     Dosage: 2 APPLICATIONS
     Route: 042
     Dates: start: 20080310, end: 20080901
  2. LEVOTHYROXINE SODIUM [Concomitant]
     Indication: THYROID DISORDER
     Route: 048
     Dates: start: 20080220
  3. VIGANTOL [Concomitant]
     Indication: VITAMIN D DEFICIENCY
     Route: 048
     Dates: start: 20080901

REACTIONS (2)
  - HYPERTENSION [None]
  - TEMPORAL LOBE EPILEPSY [None]
